FAERS Safety Report 4791267-9 (Version None)
Quarter: 2005Q4

REPORT INFORMATION
  Report Type: 
  Country: None (occurrence: None)
  Receive Date: 20051007
  Receipt Date: 20050930
  Transmission Date: 20060501
  Serious: Yes (Hospitalization)
  Sender: FDA-Public Use
  Company Number: 200518777GDDC

PATIENT
  Age: 70 Year
  Sex: Male

DRUGS (15)
  1. ARAVA [Suspect]
     Indication: RHEUMATOID ARTHRITIS
     Route: 048
     Dates: start: 20050903, end: 20050907
  2. PREDNISOLONE [Concomitant]
     Route: 048
  3. PERINDOPRIL [Concomitant]
     Route: 048
  4. ATENOLOL [Concomitant]
  5. ATORVASTATIN [Concomitant]
     Route: 048
  6. LANSOPRAZOLE [Concomitant]
     Route: 048
  7. GLICLAZIDE [Concomitant]
     Route: 048
  8. ACETAMINOPHEN [Concomitant]
     Route: 048
  9. ASPIRIN [Concomitant]
     Route: 048
  10. ETODOLAC [Concomitant]
  11. DOCUSATE [Concomitant]
     Route: 048
  12. ROSIGLITAZONE [Concomitant]
     Route: 048
  13. ALENDRONATE [Concomitant]
     Route: 048
  14. TAMSULOSIN [Concomitant]
     Route: 048
  15. LORATADINE [Concomitant]
     Route: 048

REACTIONS (6)
  - ABDOMINAL PAIN [None]
  - ASTHENIA [None]
  - DECREASED APPETITE [None]
  - FLUID INTAKE REDUCED [None]
  - NAUSEA [None]
  - URINE OUTPUT DECREASED [None]
